FAERS Safety Report 22021869 (Version 5)
Quarter: 2023Q2

REPORT INFORMATION
  Report Type: Spontaneous
  Country: US (occurrence: US)
  Receive Date: 20230222
  Receipt Date: 20230412
  Transmission Date: 20230722
  Serious: No
  Sender: FDA-Public Use
  Company Number: US-Calliditas-2023CAL00144

PATIENT
  Age: 43 Year
  Sex: Female

DRUGS (3)
  1. TARPEYO [Suspect]
     Active Substance: BUDESONIDE
     Indication: IgA nephropathy
     Dosage: 16MG (4MG CAPSULES) ONCE DAILY
     Route: 048
     Dates: start: 20220816
  2. ROSUVASTATIN [Suspect]
     Active Substance: ROSUVASTATIN
  3. LISINOPRIL [Concomitant]
     Active Substance: LISINOPRIL

REACTIONS (6)
  - Muscle spasms [Recovering/Resolving]
  - Vision blurred [Not Recovered/Not Resolved]
  - Alopecia [Recovering/Resolving]
  - Hormone level abnormal [Unknown]
  - Hunger [Unknown]
  - Product use complaint [Unknown]

NARRATIVE: CASE EVENT DATE: 20230201
